FAERS Safety Report 9562799 (Version 1)
Quarter: 2013Q3

REPORT INFORMATION
  Report Type: Report from Study
  Country: FR (occurrence: FR)
  Receive Date: 20130927
  Receipt Date: 20130927
  Transmission Date: 20140515
  Serious: Yes (Other)
  Sender: FDA-Public Use
  Company Number: FR-BRISTOL-MYERS SQUIBB COMPANY-19411552

PATIENT
  Age: 57 Year
  Sex: Female

DRUGS (4)
  1. CARBOPLATIN [Suspect]
     Indication: OVARIAN CANCER
     Dosage: STOP:22MAY13
     Route: 042
     Dates: start: 20121129, end: 20130416
  2. PACLITAXEL [Suspect]
     Indication: OVARIAN CANCER
     Dosage: STOP:16APR13
     Route: 042
     Dates: start: 20121129, end: 20130416
  3. BEVACIZUMAB [Suspect]
     Indication: OVARIAN CANCER
     Dosage: LAST DOSE: 22MAY13
     Route: 042
     Dates: start: 20121129, end: 20130522
  4. FLAGYL [Concomitant]

REACTIONS (1)
  - Fistula [Not Recovered/Not Resolved]
